FAERS Safety Report 4872024-1 (Version None)
Quarter: 2005Q4

REPORT INFORMATION
  Report Type: 
  Country: None (occurrence: None)
  Receive Date: 20051230
  Receipt Date: 20051223
  Transmission Date: 20060501
  Serious: Yes (Hospitalization)
  Sender: FDA-Public Use
  Company Number: 2005152437

PATIENT
  Sex: Male

DRUGS (2)
  1. KALCITENA (CALCIUM CARBONATE) [Suspect]
     Dosage: 250 MG; 1 TAB AM, 2 TABS WITH LUNCH, ORAL
     Route: 048
  2. WARFARIN SODIUM [Concomitant]

REACTIONS (2)
  - BLOOD CALCIUM INCREASED [None]
  - MUSCLE SPASMS [None]
